FAERS Safety Report 4949409-8 (Version None)
Quarter: 2006Q1

REPORT INFORMATION
  Report Type: 
  Country: None (occurrence: None)
  Receive Date: 20060321
  Receipt Date: 20060216
  Transmission Date: 20060701
  Serious: Yes (Death, Hospitalization)
  Sender: FDA-Public Use
  Company Number: DE-AMGEN-UK169505

PATIENT
  Sex: Male
  Weight: 68 kg

DRUGS (7)
  1. KEPIVANCE [Suspect]
     Indication: MUCOSAL INFLAMMATION
     Route: 042
     Dates: start: 20060120, end: 20060201
  2. CIPROFLOXACIN HCL [Concomitant]
     Route: 042
     Dates: start: 20060129, end: 20060201
  3. PIPERACILLIN [Concomitant]
     Route: 042
     Dates: start: 20060201, end: 20060206
  4. METRONIDAZOLE [Concomitant]
     Route: 042
     Dates: start: 20060115, end: 20060201
  5. ZOVIRAX [Concomitant]
     Route: 042
     Dates: start: 20060129, end: 20060213
  6. FLUCONAZOLE [Concomitant]
     Route: 042
     Dates: start: 20060129, end: 20060209
  7. SANDIMMUNE [Concomitant]
     Route: 042
     Dates: start: 20060129, end: 20060213

REACTIONS (8)
  - CAPILLARY LEAK SYNDROME [None]
  - CARDIAC DISORDER [None]
  - CIRCULATORY COLLAPSE [None]
  - HYPOTENSION [None]
  - LUNG INFILTRATION [None]
  - MUCOSAL INFLAMMATION [None]
  - PNEUMONIA [None]
  - RESPIRATORY FAILURE [None]
